FAERS Safety Report 12165022 (Version 1)
Quarter: 2016Q1

REPORT INFORMATION
  Report Type: Spontaneous
  Country: US (occurrence: US)
  Receive Date: 20160309
  Receipt Date: 20160309
  Transmission Date: 20160526
  Serious: No
  Sender: FDA-Public Use
  Company Number: US-ABBVIE-16P-163-1538219-00

PATIENT
  Sex: Male

DRUGS (1)
  1. LUPRON DEPOT [Suspect]
     Active Substance: LEUPROLIDE ACETATE
     Indication: PROSTATE CANCER
     Route: 030
     Dates: start: 201601, end: 201601

REACTIONS (3)
  - Drug administration error [Not Recovered/Not Resolved]
  - Transcription medication error [Not Recovered/Not Resolved]
  - Drug dispensing error [Not Recovered/Not Resolved]

NARRATIVE: CASE EVENT DATE: 201601
